FAERS Safety Report 19860376 (Version 1)
Quarter: 2021Q3

REPORT INFORMATION
  Report Type: Spontaneous
  Country: US (occurrence: US)
  Receive Date: 20210920
  Receipt Date: 20210920
  Transmission Date: 20211014
  Serious: No
  Sender: FDA-Public Use
  Company Number: None

PATIENT
  Age: 39 Year
  Sex: Male
  Weight: 145.15 kg

DRUGS (3)
  1. REGEN10987 [Concomitant]
     Dates: start: 20210913, end: 20210913
  2. REGEN10933 [Concomitant]
     Dates: start: 20210913, end: 20210913
  3. CASIRIVIMAB. [Suspect]
     Active Substance: CASIRIVIMAB
     Indication: COVID-19
     Route: 041
     Dates: start: 20210913, end: 20210913

REACTIONS (3)
  - Product label confusion [None]
  - Incorrect dose administered [None]
  - Product communication issue [None]

NARRATIVE: CASE EVENT DATE: 20210913
